FAERS Safety Report 24354036 (Version 2)
Quarter: 2024Q4

REPORT INFORMATION
  Report Type: Report from Study
  Country: CO (occurrence: CO)
  Receive Date: 20240923
  Receipt Date: 20241004
  Transmission Date: 20250115
  Serious: Yes (Hospitalization)
  Sender: NOVARTIS
  Company Number: CO-002147023-NVSC2024CO121817

PATIENT
  Sex: Male
  Weight: 60 kg

DRUGS (4)
  1. ELTROMBOPAG OLAMINE [Suspect]
     Active Substance: ELTROMBOPAG OLAMINE
     Indication: Congenital aplasia
     Dosage: 50 MG, QD
     Route: 048
     Dates: start: 20240521
  2. ELTROMBOPAG OLAMINE [Suspect]
     Active Substance: ELTROMBOPAG OLAMINE
     Dosage: 150 MG, QD
     Route: 048
  3. ACYCLOVIR [Concomitant]
     Active Substance: ACYCLOVIR
     Indication: Product used for unknown indication
     Dosage: UNK
     Route: 065
  4. TRIMEBUTINE [Concomitant]
     Active Substance: TRIMEBUTINE
     Indication: Product used for unknown indication
     Dosage: 200 MG, Q8H
     Route: 065

REACTIONS (10)
  - Transaminases increased [Unknown]
  - Asthenia [Unknown]
  - Confusional state [Unknown]
  - Malaise [Recovering/Resolving]
  - Abdominal pain upper [Unknown]
  - Emotional poverty [Unknown]
  - Fatigue [Unknown]
  - Musculoskeletal stiffness [Unknown]
  - Pain in extremity [Unknown]
  - Ill-defined disorder [Unknown]
